FAERS Safety Report 21367478 (Version 2)
Quarter: 2022Q3

REPORT INFORMATION
  Report Type: Report from Study
  Country: BR (occurrence: BR)
  Receive Date: 20220923
  Receipt Date: 20220927
  Transmission Date: 20221027
  Serious: Yes (Hospitalization)
  Sender: FDA-Public Use
  Company Number: BR-ABBVIE-4129054

PATIENT
  Age: 66 Year
  Sex: Male
  Weight: 82 kg

DRUGS (1)
  1. SKYRIZI [Suspect]
     Active Substance: RISANKIZUMAB-RZAA
     Indication: Psoriasis
     Route: 058
     Dates: start: 20201117, end: 202204

REACTIONS (1)
  - Surgery [Recovering/Resolving]

NARRATIVE: CASE EVENT DATE: 20220801
